FAERS Safety Report 17638075 (Version 2)
Quarter: 2020Q2

REPORT INFORMATION
  Report Type: Report from Study
  Country: CO (occurrence: CO)
  Receive Date: 20200407
  Receipt Date: 20200526
  Transmission Date: 20200713
  Serious: Yes (Death, Hospitalization, Other)
  Sender: FDA-Public Use
  Company Number: CO-BAYER-2020-050002

PATIENT
  Age: 66 Year
  Sex: Male

DRUGS (1)
  1. STIVARGA [Suspect]
     Active Substance: REGORAFENIB
     Indication: HEPATOCELLULAR CARCINOMA
     Dosage: DAILY DOSE 160 MG
     Dates: start: 20200309, end: 20200329

REACTIONS (11)
  - Dyspnoea [Unknown]
  - Intra-abdominal fluid collection [Not Recovered/Not Resolved]
  - Dysphonia [Not Recovered/Not Resolved]
  - Gait disturbance [Unknown]
  - Encephalopathy [Unknown]
  - Hepatocellular carcinoma [Unknown]
  - Cardio-respiratory arrest [Fatal]
  - Inflammation [Unknown]
  - Ascites [Unknown]
  - Abdominal cavity drainage [Not Recovered/Not Resolved]
  - Hepatic encephalopathy [Unknown]

NARRATIVE: CASE EVENT DATE: 20200309
